FAERS Safety Report 8456125-7 (Version None)
Quarter: 2012Q2

REPORT INFORMATION
  Report Type: 
  Country: None (occurrence: None)
  Receive Date: 20120621
  Receipt Date: 20120614
  Transmission Date: 20120825
  Serious: Yes (Hospitalization)
  Sender: FDA-Public Use
  Company Number: ES-ELI_LILLY_AND_COMPANY-ES201206004963

PATIENT
  Sex: Female
  Weight: 65 kg

DRUGS (5)
  1. RABEPRAZOLE SODIUM [Concomitant]
     Indication: GASTRIC DISORDER
     Dosage: 20 MG, QD
     Route: 048
     Dates: start: 20070101
  2. PLAVIX [Concomitant]
     Indication: ANTIPLATELET THERAPY
     Dosage: 75 MG, QD
     Route: 048
     Dates: start: 20000101
  3. VENORUTON                          /00027704/ [Concomitant]
     Indication: CARDIOVASCULAR DISORDER
     Dosage: 100 MG, QD
     Route: 048
     Dates: start: 20090101
  4. FORTEO [Suspect]
     Indication: OSTEOPOROSIS
     Dosage: 20 UG, QD
     Route: 058
     Dates: start: 20110304
  5. FUROSEMIDE [Concomitant]
     Indication: FLUID RETENTION
     Dosage: 40 MG, QD
     Route: 048
     Dates: start: 20010101

REACTIONS (1)
  - CHOLELITHIASIS [None]
